FAERS Safety Report 9027332 (Version 1)
Quarter: 2013Q1

REPORT INFORMATION
  Report Type: Spontaneous
  Country: CO (occurrence: CO)
  Receive Date: 20130123
  Receipt Date: 20130123
  Transmission Date: 20140127
  Serious: Yes (Hospitalization)
  Sender: FDA-Public Use
  Company Number: CO-B.I. PHARMACEUTICALS,INC./RIDGEFIELD-2013-RA-00012RA

PATIENT
  Age: 86 Year
  Sex: Female

DRUGS (10)
  1. PRADAXA [Suspect]
     Indication: ATRIAL FIBRILLATION
     Dosage: 110MG EVERY 12 HOURS
     Route: 048
     Dates: start: 201112
  2. LOSARTAN [Concomitant]
     Indication: HYPERTENSION
     Dosage: 50MG EVERY 12 HOURS
     Route: 048
  3. LOVASTATINA [Concomitant]
     Indication: CARDIOVASCULAR EVENT PROPHYLAXIS
     Dosage: 20 MG
     Route: 048
  4. PHENYTOIN [Concomitant]
     Indication: CONVULSION
  5. PROPAFENONA [Concomitant]
     Indication: ATRIAL FIBRILLATION
     Dosage: 150 MG
     Route: 048
  6. CARVEDILOL [Concomitant]
     Indication: CARDIAC DISORDER
     Dosage: 6.25MG EVERY 12HOURS
     Route: 048
  7. GABAPENTIN [Concomitant]
     Indication: NEURALGIA
     Dosage: 300MG EVERY 12 HOURS
     Route: 048
  8. OMEPRAZOLE [Concomitant]
     Dosage: 20 MG
     Route: 048
  9. FLUOXETINA [Concomitant]
     Dosage: 20 MG
     Route: 048
  10. PREGABALIN [Concomitant]
     Indication: NEURALGIA
     Dosage: 150MG EVERY 12 HOURS
     Route: 048

REACTIONS (1)
  - Ischaemic stroke [Recovered/Resolved]
